FAERS Safety Report 10611179 (Version 1)
Quarter: 2014Q4

REPORT INFORMATION
  Report Type: Spontaneous
  Country: GB (occurrence: None)
  Receive Date: 20141124
  Receipt Date: 20141124
  Transmission Date: 20150529
  Serious: Yes (Other)
  Sender: FDA-Public Use
  Company Number: 2014316456

PATIENT
  Age: 51 Year
  Sex: Female
  Weight: 61 kg

DRUGS (2)
  1. FRAGMIN [Suspect]
     Active Substance: DALTEPARIN SODIUM
     Indication: SYSTEMIC LUPUS ERYTHEMATOSUS
     Route: 051
     Dates: start: 19990817
  2. PROPYLTHIOURACIL. [Concomitant]
     Active Substance: PROPYLTHIOURACIL

REACTIONS (9)
  - Contusion [None]
  - Injection site pain [None]
  - Off label use [None]
  - Osteoporosis [None]
  - Injection site mass [None]
  - Tooth loss [None]
  - Injection site bruising [None]
  - Alopecia [None]
  - Pruritus [None]
